FAERS Safety Report 7352451-3 (Version None)
Quarter: 2011Q1

REPORT INFORMATION
  Report Type: 
  Country: None (occurrence: None)
  Receive Date: 20110315
  Receipt Date: 20110308
  Transmission Date: 20110831
  Serious: Yes (Other)
  Sender: FDA-Public Use
  Company Number: GB-PFIZER INC-2011050372

PATIENT
  Age: 11 Year
  Sex: Female

DRUGS (2)
  1. GENOTROPIN [Suspect]
     Dosage: 0.8 UG, UNK, TAKEN FOR LESS THAN A YEAR
  2. ACWY VAX [Suspect]
     Indication: IMMUNISATION

REACTIONS (1)
  - COORDINATION ABNORMAL [None]
